FAERS Safety Report 17908787 (Version 4)
Quarter: 2020Q3

REPORT INFORMATION
  Report Type: Report from Study
  Country: DK (occurrence: DK)
  Receive Date: 20200617
  Receipt Date: 20200914
  Transmission Date: 20201103
  Serious: Yes (Hospitalization)
  Sender: FDA-Public Use
  Company Number: DK-ROCHE-2610885

PATIENT
  Age: 65 Year
  Sex: Female
  Weight: 82 kg

DRUGS (23)
  1. ELIQUIS [Concomitant]
     Active Substance: APIXABAN
     Indication: PROPHYLAXIS
     Route: 048
     Dates: start: 20200503, end: 20200503
  2. METOCLOPRAMID [Concomitant]
     Active Substance: METOCLOPRAMIDE
     Indication: NAUSEA
     Route: 048
     Dates: start: 20200529, end: 20200602
  3. CHLORAMBUCIL [Suspect]
     Active Substance: CHLORAMBUCIL
     Indication: CHRONIC LYMPHOCYTIC LEUKAEMIA
     Dosage: ON 13/JUN/2017, THE PATIENT RECEIVED MOST RECENT DOSE PRIOR TO EVENT 38 MG.
     Route: 048
     Dates: start: 20160707
  4. ENOXAPARIN [Concomitant]
     Active Substance: ENOXAPARIN
     Indication: THROMBOSIS
     Route: 058
     Dates: start: 20200527, end: 20200601
  5. OBINUTUZUMAB. [Suspect]
     Active Substance: OBINUTUZUMAB
     Indication: CHRONIC LYMPHOCYTIC LEUKAEMIA
     Dosage: ON 07/DEC/2016, AT 09.20 THE PATIENT RECEIVED MOST RECENT DOSE 1000 MG PRIOR TO EVENT.
     Route: 042
     Dates: start: 20160707
  6. NATRIUM CHLORIDE [Concomitant]
     Active Substance: SODIUM CHLORIDE
     Route: 042
     Dates: start: 20200503, end: 20200503
  7. NATRIUM CHLORIDE [Concomitant]
     Active Substance: SODIUM CHLORIDE
     Route: 042
     Dates: start: 20200529, end: 20200530
  8. METOPROLOLSUCCINAT [Concomitant]
     Active Substance: METOPROLOL SUCCINATE
     Route: 048
     Dates: start: 20200505
  9. PARACETAMOL [Concomitant]
     Active Substance: ACETAMINOPHEN
     Indication: PAIN
     Route: 048
     Dates: start: 20200528, end: 20200622
  10. ATORVASTATIN [Concomitant]
     Active Substance: ATORVASTATIN
     Indication: HYPERCHOLESTEROLAEMIA
     Route: 048
  11. BENZYLPENICILLIN [Concomitant]
     Active Substance: PENICILLIN G
     Indication: PNEUMONIA
     Route: 042
     Dates: start: 20200527, end: 20200527
  12. VANCOMYCIN [Concomitant]
     Active Substance: VANCOMYCIN
     Indication: INFECTION
     Route: 042
     Dates: start: 20200527, end: 20200528
  13. POTASSIUM CHLORIDE. [Concomitant]
     Active Substance: POTASSIUM CHLORIDE
     Route: 048
     Dates: start: 20200605, end: 20200607
  14. TINZAPARIN [Concomitant]
     Active Substance: TINZAPARIN
     Indication: THROMBOSIS
     Route: 058
     Dates: start: 20200601, end: 20200618
  15. NATRIUM CHLORIDE [Concomitant]
     Active Substance: SODIUM CHLORIDE
     Route: 042
     Dates: start: 20200527, end: 20200527
  16. BENZYLPENICILLIN [Concomitant]
     Active Substance: PENICILLIN G
     Indication: INFECTION
     Route: 042
     Dates: start: 20200529, end: 20200530
  17. RINGER?ACETAT [Concomitant]
     Route: 042
     Dates: start: 20200528, end: 20200616
  18. POTASSIUM CHLORIDE. [Concomitant]
     Active Substance: POTASSIUM CHLORIDE
     Indication: BLOOD POTASSIUM DECREASED
     Route: 048
     Dates: start: 20200531, end: 20200601
  19. MACROGOL [Concomitant]
     Active Substance: POLYETHYLENE GLYCOLS
     Indication: CONSTIPATION
     Route: 048
     Dates: start: 20200618, end: 20200622
  20. PIPERACILLINE / TAZOBACTAM [Concomitant]
     Active Substance: PIPERACILLIN SODIUM\TAZOBACTAM SODIUM
     Indication: PNEUMONIA
     Route: 042
     Dates: start: 20200527, end: 20200529
  21. IBUPROFEN. [Concomitant]
     Active Substance: IBUPROFEN
     Indication: PAIN
     Route: 048
     Dates: start: 20200527, end: 20200528
  22. GLUCOSE NATRIUM CHLORIDE [Concomitant]
     Route: 042
     Dates: start: 20200527, end: 20200527
  23. PIPERACILLINE / TAZOBACTAM [Concomitant]
     Active Substance: PIPERACILLIN SODIUM\TAZOBACTAM SODIUM
     Route: 042
     Dates: start: 20200530, end: 20200603

REACTIONS (1)
  - COVID-19 [Recovered/Resolved]

NARRATIVE: CASE EVENT DATE: 20200527
